FAERS Safety Report 5735743-0 (Version None)
Quarter: 2008Q2

REPORT INFORMATION
  Report Type: 
  Country: None (occurrence: None)
  Receive Date: 20080513
  Receipt Date: 20080509
  Transmission Date: 20081010
  Serious: Yes (Life-Threatening, Hospitalization, Other)
  Sender: FDA-Public Use
  Company Number: US-BRISTOL-MYERS SQUIBB COMPANY-14126130

PATIENT
  Age: 65 Year
  Sex: Female
  Weight: 72 kg

DRUGS (24)
  1. COUMADIN [Suspect]
     Indication: ATRIAL FIBRILLATION
     Route: 048
     Dates: start: 20080209
  2. COUMADIN [Suspect]
     Indication: ANTICOAGULANT THERAPY
     Route: 048
     Dates: start: 20080209
  3. ONDANSETRON [Suspect]
     Indication: PROPHYLAXIS OF NAUSEA AND VOMITING
     Dosage: ADMINISTERED ONCE
     Route: 042
     Dates: start: 20080205, end: 20080205
  4. BLINDED: PLACEBO [Suspect]
     Indication: PROPHYLAXIS OF NAUSEA AND VOMITING
     Route: 048
     Dates: start: 20080205, end: 20080205
  5. LOVENOX [Suspect]
     Indication: ANTICOAGULANT THERAPY
     Route: 058
     Dates: start: 20080207
  6. METOPROLOL TARTRATE [Concomitant]
     Dates: start: 20070901
  7. IBUPROFEN TABLETS [Concomitant]
     Dates: start: 20080207
  8. SENNA [Concomitant]
     Dates: start: 20080207
  9. PERCOCET [Concomitant]
     Dates: start: 20080207
  10. MILK OF MAGNESIA [Concomitant]
     Dates: start: 20080213, end: 20080213
  11. CLOPIDOGREL BISULFATE [Concomitant]
     Dates: start: 20071112, end: 20080131
  12. MEPERIDINE HCL [Concomitant]
     Dates: start: 20080205, end: 20080205
  13. MORPHINE [Concomitant]
     Dates: start: 20080205, end: 20080205
  14. AMPICILLIN [Concomitant]
     Dates: start: 20080205, end: 20080205
  15. OXYCODONE HCL [Concomitant]
     Dates: start: 20080207
  16. MIDAZOLAM HCL [Concomitant]
     Dates: start: 20080205, end: 20080205
  17. PROPOFOL [Concomitant]
     Dates: start: 20080205, end: 20080205
  18. LIDOCAINE [Concomitant]
     Dates: start: 20080205, end: 20080205
  19. FENTANYL [Concomitant]
     Dates: start: 20080205, end: 20080205
  20. WARFARIN SODIUM [Concomitant]
     Indication: THROMBOSIS
     Dosage: 3 MG GIVEN PO DAILY FROM 17SEP07-31JAN08; 6 MG GIVEN PO TWO TIMES FROM 07FEB08-08FEB08.
     Route: 048
     Dates: start: 20070917, end: 20080208
  21. ENOXAPARIN SODIUM [Concomitant]
     Indication: THROMBOSIS
     Dosage: 70 MG PO BID FROM 1FEB08-04FEB08; 30 MG SC ONCE ON 06FEB08; 60 MG 3 TIMES FROM 07FEB08-08FEB08
     Dates: start: 20080201, end: 20080208
  22. ROCURONIUM BROMIDE [Concomitant]
     Dates: start: 20080205, end: 20080205
  23. GENTAMICIN [Concomitant]
     Dates: start: 20080205, end: 20080205
  24. PHENYLEPHRINE [Concomitant]
     Dates: start: 20080205, end: 20080205

REACTIONS (6)
  - ABDOMINAL PAIN [None]
  - DYSPNOEA [None]
  - INTRA-ABDOMINAL HAEMORRHAGE [None]
  - PNEUMONIA [None]
  - PULMONARY EMBOLISM [None]
  - SPLENIC RUPTURE [None]
